FAERS Safety Report 13124916 (Version 1)
Quarter: 2017Q1

REPORT INFORMATION
  Report Type: Spontaneous
  Country: US (occurrence: US)
  Receive Date: 20170118
  Receipt Date: 20170118
  Transmission Date: 20170428
  Serious: Yes (Life-Threatening, Other)
  Sender: FDA-Public Use
  Company Number: US-NAPPMUNDI-USA-2017-0135863

PATIENT
  Sex: Female

DRUGS (1)
  1. DILAUDID [Suspect]
     Active Substance: HYDROMORPHONE HYDROCHLORIDE
     Indication: PAIN
     Route: 048

REACTIONS (6)
  - Activities of daily living impaired [Unknown]
  - Sedation [Unknown]
  - Drug withdrawal syndrome [Unknown]
  - Life support [Recovering/Resolving]
  - Injury [Unknown]
  - Bedridden [Unknown]
